FAERS Safety Report 8012318-4 (Version None)
Quarter: 2011Q4

REPORT INFORMATION
  Report Type: 
  Country: None (occurrence: None)
  Receive Date: 20111228
  Receipt Date: 20111219
  Transmission Date: 20120403
  Serious: Yes (Other)
  Sender: FDA-Public Use
  Company Number: US-ASTRAZENECA-2011SE77147

PATIENT
  Age: 45 Year
  Sex: Male
  Weight: 68.5 kg

DRUGS (2)
  1. SEROQUEL XR [Suspect]
     Indication: SCHIZOPHRENIA
     Route: 048
     Dates: start: 19990101
  2. SEROQUEL XR [Suspect]
     Indication: BIPOLAR DISORDER
     Route: 048
     Dates: start: 19990101

REACTIONS (9)
  - DYSSTASIA [None]
  - JOINT INJURY [None]
  - ASTHENIA [None]
  - DRUG DOSE OMISSION [None]
  - GAIT DISTURBANCE [None]
  - FALL [None]
  - LOSS OF CONSCIOUSNESS [None]
  - TONGUE DISORDER [None]
  - DIZZINESS [None]
